FAERS Safety Report 7459565-8 (Version None)
Quarter: 2011Q2

REPORT INFORMATION
  Report Type: 
  Country: None (occurrence: None)
  Receive Date: 20110427
  Receipt Date: 20110414
  Transmission Date: 20111010
  Serious: Yes (Hospitalization)
  Sender: FDA-Public Use
  Company Number: 2011SP016938

PATIENT
  Age: 47 Year
  Sex: Male
  Weight: 106 kg

DRUGS (2)
  1. VIRAFERONPEG [Suspect]
     Indication: HEPATITIS C
     Dosage: 150 MCG;QW
     Dates: start: 20100601
  2. REBETOL [Suspect]
     Indication: HEPATITIS C
     Dosage: 1200 MG;QD
     Dates: start: 20100601

REACTIONS (1)
  - LUNG DISORDER [None]
